FAERS Safety Report 20831906 (Version 1)
Quarter: 2022Q2

REPORT INFORMATION
  Report Type: 
  Country: None (occurrence: None)
  Receive Date: 20220516
  Receipt Date: 20220516
  Transmission Date: 20220721
  Serious: No
  Sender: FDA-Public Use
  Company Number: US-ROCHE-1961194

PATIENT
  Age: 38 Year
  Weight: 43.121 kg

DRUGS (5)
  1. RITUXAN [Suspect]
     Active Substance: RITUXIMAB
     Dosage: ONGOING: UNKNOWN
  2. RITUXAN [Suspect]
     Active Substance: RITUXIMAB
     Dosage: DAY 1 AND DAY 15
     Dates: start: 20170707
  3. OCREVUS [Suspect]
     Active Substance: OCRELIZUMAB
     Dosage: DATE OF TREATMENT: 14/MAR/2018, 05/SEP/2018, 14/MAR/2019, 08/SEP/2019, 02/MAR/2020, 10/SEP/2020,
  4. MYRBETRIQ [Concomitant]
     Active Substance: MIRABEGRON
  5. FLOMAX [Concomitant]
     Active Substance: TAMSULOSIN HYDROCHLORIDE

REACTIONS (6)
  - Disease recurrence [None]
  - Sensory loss [None]
  - Off label use [None]
  - Pancreatitis [None]
  - Anxiety [None]
  - Insomnia [None]

NARRATIVE: CASE EVENT DATE: 20220503
